FAERS Safety Report 10505220 (Version 1)
Quarter: 2014Q4

REPORT INFORMATION
  Report Type: Spontaneous
  Country: US (occurrence: US)
  Receive Date: 20141008
  Receipt Date: 20141008
  Transmission Date: 20150528
  Serious: Yes (Death)
  Sender: FDA-Public Use
  Company Number: CHPA2014US013565

PATIENT
  Sex: Female

DRUGS (1)
  1. BUCKLEY^S MIXTURE (AMMONIUM) [Suspect]
     Active Substance: AMMONIUM CARBONATE\CAMPHOR\HERBALS\MENTHOL\POTASSIUM BICARBONATE
     Indication: NASOPHARYNGITIS
     Route: 048

REACTIONS (1)
  - Death [Fatal]

NARRATIVE: CASE EVENT DATE: 2011
